FAERS Safety Report 7572041-7 (Version None)
Quarter: 2011Q2

REPORT INFORMATION
  Report Type: 
  Country: None (occurrence: None)
  Receive Date: 20110624
  Receipt Date: 20110622
  Transmission Date: 20111010
  Serious: Yes (Hospitalization)
  Sender: FDA-Public Use
  Company Number: VN-ABBOTT-11P-179-0732666-00

PATIENT
  Age: 27 Year
  Sex: Female

DRUGS (2)
  1. DEPAKENE [Suspect]
     Indication: EPILEPSY
     Route: 048
  2. RADIX PSEUDOGINSENG [Concomitant]
     Indication: PRODUCT USED FOR UNKNOWN INDICATION

REACTIONS (11)
  - RASH MACULO-PAPULAR [None]
  - MYALGIA [None]
  - PERIORBITAL OEDEMA [None]
  - COUGH [None]
  - DRUG RASH WITH EOSINOPHILIA AND SYSTEMIC SYMPTOMS [None]
  - EOSINOPHILIA [None]
  - LYMPHADENOPATHY [None]
  - ASTHENIA [None]
  - ORAL MUCOSA EROSION [None]
  - HYPERCREATINAEMIA [None]
  - PYREXIA [None]
